FAERS Safety Report 5673809-4 (Version None)
Quarter: 2008Q2

REPORT INFORMATION
  Report Type: 
  Country: None (occurrence: None)
  Receive Date: 20080226
  Receipt Date: 20070618
  Transmission Date: 20081010
  Serious: Yes (Other)
  Sender: FDA-Public Use
  Company Number: 502977

PATIENT
  Age: 41 Year
  Sex: Female
  Weight: 72.6 kg

DRUGS (3)
  1. ACCUTANE [Suspect]
     Indication: ACNE
     Dosage: 40 MG  2 PER DAY  ORAL
     Route: 048
  2. ISOTRETINOIN [Suspect]
     Indication: ACNE
     Dosage: 40 MG  2 PER DAY  ORAL
     Route: 048
  3. BIRTH CONTROL PILLS NOS (ORAL CONTRACEPTIVE NOS) [Concomitant]

REACTIONS (1)
  - DEAFNESS [None]
